FAERS Safety Report 25941339 (Version 1)
Quarter: 2025Q4

REPORT INFORMATION
  Report Type: Spontaneous
  Country: CN (occurrence: CN)
  Receive Date: 20251020
  Receipt Date: 20251020
  Transmission Date: 20260118
  Serious: Yes (Other)
  Sender: BRISTOL-MYERS SQUIBB COMPANY
  Company Number: CN-BRISTOL-MYERS SQUIBB COMPANY-2025-140425

PATIENT
  Age: 52 Year
  Sex: Male
  Weight: 85 kg

DRUGS (4)
  1. OPDIVO [Suspect]
     Active Substance: NIVOLUMAB
     Indication: Gastric cancer
  2. OPDIVO [Suspect]
     Active Substance: NIVOLUMAB
     Dosage: THIRD CHEMOTHERAPY CYCLE
     Dates: start: 20250730, end: 20250730
  3. ABRAXANE [Suspect]
     Active Substance: PACLITAXEL
     Indication: Gastric cancer
  4. TEGAFUR [Suspect]
     Active Substance: TEGAFUR
     Indication: Gastric cancer

REACTIONS (4)
  - Drug-induced liver injury [Recovering/Resolving]
  - Off label use [Unknown]
  - Alanine aminotransferase increased [Recovering/Resolving]
  - Aspartate aminotransferase increased [Recovering/Resolving]

NARRATIVE: CASE EVENT DATE: 20250803
